FAERS Safety Report 21573023 (Version 1)
Quarter: 2022Q4

REPORT INFORMATION
  Report Type: Spontaneous
  Country: US (occurrence: US)
  Receive Date: 20221109
  Receipt Date: 20221109
  Transmission Date: 20230113
  Serious: Yes (Other)
  Sender: FDA-Public Use
  Company Number: US-PFIZER INC-PV202200098139

PATIENT
  Age: 81 Year
  Sex: Male
  Weight: 97.052 kg

DRUGS (5)
  1. XELJANZ [Suspect]
     Active Substance: TOFACITINIB CITRATE
     Dosage: 5 MG, 2X/DAY
     Dates: start: 20141111, end: 202010
  2. METHOTREXATE [Concomitant]
     Active Substance: METHOTREXATE
     Indication: Rheumatoid arthritis
     Dosage: UNK
     Route: 058
     Dates: start: 20220101
  3. ASPIRIN [Concomitant]
     Active Substance: ASPIRIN
     Dosage: UNK
  4. LYRICA [Concomitant]
     Active Substance: PREGABALIN
     Dosage: UNK
  5. FOLIC ACID [Concomitant]
     Active Substance: FOLIC ACID
     Dosage: UNK

REACTIONS (15)
  - Cholecystitis infective [Unknown]
  - Cellulitis [Unknown]
  - Cholecystectomy [Unknown]
  - Gallbladder cholesterolosis [Unknown]
  - Osteoarthritis [Unknown]
  - Drug ineffective [Unknown]
  - Depression [Unknown]
  - Asthma [Unknown]
  - Chronic obstructive pulmonary disease [Unknown]
  - Gastroenteritis [Unknown]
  - Vertigo [Unknown]
  - Dysphonia [Unknown]
  - Obstructive sleep apnoea syndrome [Unknown]
  - Fibromyalgia [Unknown]
  - Vision blurred [Unknown]

NARRATIVE: CASE EVENT DATE: 20140101
